FAERS Safety Report 4547152-0 (Version None)
Quarter: 2005Q1

REPORT INFORMATION
  Report Type: 
  Country: None (occurrence: None)
  Receive Date: 20050107
  Receipt Date: 20041201
  Transmission Date: 20050727
  Serious: Yes (Hospitalization)
  Sender: FDA-Public Use
  Company Number: DE-AMGEN-US103103

PATIENT
  Sex: Female
  Weight: 84 kg

DRUGS (3)
  1. ENBREL [Suspect]
     Indication: ANKYLOSING SPONDYLITIS
     Route: 058
     Dates: start: 20040323
  2. LANTAREL [Concomitant]
     Route: 048
     Dates: start: 20040201, end: 20041101
  3. FOSAMAX [Concomitant]
     Route: 048
     Dates: start: 20040401, end: 20041101

REACTIONS (2)
  - DIARRHOEA [None]
  - PERITONITIS [None]
